FAERS Safety Report 5764564-8 (Version None)
Quarter: 2008Q2

REPORT INFORMATION
  Report Type: 
  Country: None (occurrence: None)
  Receive Date: 20080605
  Receipt Date: 20080521
  Transmission Date: 20081010
  Serious: Yes (Hospitalization)
  Sender: FDA-Public Use
  Company Number: 231191J08USA

PATIENT
  Age: 63 Year
  Sex: Female
  Weight: 104.1459 kg

DRUGS (16)
  1. REBIF [Suspect]
     Indication: MULTIPLE SCLEROSIS
     Dosage: 44 MCG, 3 IN 1 WEEKS, SUBCUTANEOUS; SUBCUTANEOUS; 44 MCG, 3 IN 1 WEEKS, SUBCUTANEOUS
     Route: 058
     Dates: start: 20061122, end: 20080301
  2. REBIF [Suspect]
     Indication: MULTIPLE SCLEROSIS
     Dosage: 44 MCG, 3 IN 1 WEEKS, SUBCUTANEOUS; SUBCUTANEOUS; 44 MCG, 3 IN 1 WEEKS, SUBCUTANEOUS
     Route: 058
     Dates: start: 20080301, end: 20080301
  3. REBIF [Suspect]
     Indication: MULTIPLE SCLEROSIS
     Dosage: 44 MCG, 3 IN 1 WEEKS, SUBCUTANEOUS; SUBCUTANEOUS; 44 MCG, 3 IN 1 WEEKS, SUBCUTANEOUS
     Route: 058
     Dates: start: 20080501
  4. PREMPRO [Suspect]
     Indication: HORMONE REPLACEMENT THERAPY
     Dates: start: 20070601, end: 20070701
  5. CELEBREX [Suspect]
     Indication: MULTIPLE SCLEROSIS
     Dates: end: 20070701
  6. SYNTHROID [Concomitant]
  7. PRAVASTATIN [Concomitant]
  8. IBUPROFEN [Concomitant]
  9. PURPLE PILL (ALL OTHER THERAPEUTIC PRODUCTS) [Concomitant]
  10. COZAAR [Concomitant]
  11. DILTIAZEM [Concomitant]
  12. WELLBUTRIN [Concomitant]
  13. SEROQUEL [Concomitant]
  14. ZETIA [Concomitant]
  15. PREMPRO (PROVELLA-14) [Concomitant]
  16. TRICOR [Concomitant]

REACTIONS (10)
  - ACUTE MYOCARDIAL INFARCTION [None]
  - ANAEMIA [None]
  - CORONARY ARTERY OCCLUSION [None]
  - DIZZINESS [None]
  - HYPERHIDROSIS [None]
  - LYMPHOCYTE COUNT INCREASED [None]
  - NAUSEA [None]
  - SCAR [None]
  - SINUSITIS [None]
  - WHITE BLOOD CELL COUNT DECREASED [None]
